FAERS Safety Report 10882199 (Version 2)
Quarter: 2015Q1

REPORT INFORMATION
  Report Type: Spontaneous
  Country: AU (occurrence: AU)
  Receive Date: 20150303
  Receipt Date: 20150327
  Transmission Date: 20150721
  Serious: Yes (Other)
  Sender: FDA-Public Use
  Company Number: AU-ASTRAZENECA-2015SE07199

PATIENT
  Age: 19971 Day
  Sex: Female
  Weight: 94.6 kg

DRUGS (5)
  1. FORXIGA [Suspect]
     Active Substance: DAPAGLIFLOZIN
     Indication: PRODUCT USED FOR UNKNOWN INDICATION
     Route: 048
     Dates: start: 20140802, end: 20141113
  2. DIAMICRON XR [Concomitant]
     Indication: DIABETES MELLITUS
     Dosage: 60
     Route: 048
  3. INSULIN [Concomitant]
     Active Substance: INSULIN NOS
     Indication: DIABETES MELLITUS
     Dates: end: 20141011
  4. PROGOUT [Concomitant]
     Active Substance: ALLOPURINOL
     Indication: GOUT
     Dosage: 300
  5. BRUFEN [Concomitant]
     Active Substance: IBUPROFEN
     Indication: PAIN
     Dosage: 400 PRN
     Route: 048

REACTIONS (4)
  - Vulvovaginal pain [Recovered/Resolved]
  - Vulvovaginal pruritus [Recovered/Resolved]
  - Sexual dysfunction [Recovered/Resolved]
  - Vulvovaginal burning sensation [Recovered/Resolved]

NARRATIVE: CASE EVENT DATE: 20141113
